FAERS Safety Report 7962353-7 (Version None)
Quarter: 2011Q4

REPORT INFORMATION
  Report Type: 
  Country: None (occurrence: None)
  Receive Date: 20111207
  Receipt Date: 20111130
  Transmission Date: 20120403
  Serious: Yes (Hospitalization, Disabling, Other)
  Sender: FDA-Public Use
  Company Number: US-MERCK-1008USA01652

PATIENT
  Age: 71 Year
  Sex: Female
  Weight: 61 kg

DRUGS (8)
  1. FOSAMAX [Suspect]
     Indication: OSTEOPOROSIS
     Route: 048
     Dates: start: 20010601, end: 20080101
  2. SYNTHROID [Concomitant]
     Route: 065
  3. CALCIUM (UNSPECIFIED) [Concomitant]
     Indication: OSTEOPOROSIS
     Route: 065
  4. ZOVIRAX [Concomitant]
     Indication: GENITAL HERPES
     Route: 065
  5. ZOVIRAX [Concomitant]
     Route: 065
  6. FOSAMAX [Suspect]
     Route: 048
     Dates: start: 19981001, end: 20001101
  7. ASPIRIN [Concomitant]
     Route: 065
  8. FOSAMAX [Suspect]
     Route: 048
     Dates: start: 20001101, end: 20010601

REACTIONS (38)
  - BASAL CELL CARCINOMA [None]
  - PATHOLOGICAL FRACTURE [None]
  - STRESS FRACTURE [None]
  - INTERVERTEBRAL DISC DEGENERATION [None]
  - CARDIAC MURMUR [None]
  - MITRAL VALVE INCOMPETENCE [None]
  - MENISCUS LESION [None]
  - AORTIC ARTERIOSCLEROSIS [None]
  - BRONCHIECTASIS [None]
  - EXOSTOSIS [None]
  - HAEMORRHOIDS [None]
  - SPINAL OSTEOARTHRITIS [None]
  - TENDON DISORDER [None]
  - FEMUR FRACTURE [None]
  - LIVER FUNCTION TEST ABNORMAL [None]
  - SPONDYLITIS [None]
  - PATELLOFEMORAL PAIN SYNDROME [None]
  - ARTHRALGIA [None]
  - TRICUSPID VALVE INCOMPETENCE [None]
  - TENOSYNOVITIS [None]
  - BLOOD CHOLESTEROL INCREASED [None]
  - BURSITIS [None]
  - GAIT DISTURBANCE [None]
  - ABDOMINAL DISTENSION [None]
  - LUNG NEOPLASM [None]
  - DIARRHOEA [None]
  - LIGAMENT SPRAIN [None]
  - WEIGHT INCREASED [None]
  - SACROILIITIS [None]
  - RHINITIS ALLERGIC [None]
  - ATYPICAL MYCOBACTERIAL INFECTION [None]
  - JOINT EFFUSION [None]
  - RECTAL FISSURE [None]
  - FLATULENCE [None]
  - FALL [None]
  - FRACTURE NONUNION [None]
  - HYPERTENSION [None]
  - BREAST ENLARGEMENT [None]
